FAERS Safety Report 17180544 (Version 1)
Quarter: 2019Q4

REPORT INFORMATION
  Report Type: Spontaneous
  Country: PL (occurrence: PL)
  Receive Date: 20191219
  Receipt Date: 20191219
  Transmission Date: 20200122
  Serious: Yes (Life-Threatening, Hospitalization, Other)
  Sender: FDA-Public Use
  Company Number: PL-PFIZER INC-2019542833

PATIENT
  Age: 63 Year
  Sex: Female
  Weight: 78 kg

DRUGS (3)
  1. PACLITAXEL. [Suspect]
     Active Substance: PACLITAXEL
     Indication: BREAST NEOPLASM
     Dosage: 145.6 MG, UNK
     Route: 042
     Dates: start: 20160705, end: 20160705
  2. SOLVERTYL [Concomitant]
     Indication: BREAST CANCER FEMALE
     Dosage: 50 MG, UNK
     Route: 042
     Dates: start: 20160705, end: 20160705
  3. CLEMASTIN [Concomitant]
     Active Substance: CLEMASTINE
     Indication: BREAST CANCER FEMALE
     Dosage: 2 MG, UNK
     Route: 042
     Dates: start: 20160705, end: 20160705

REACTIONS (4)
  - Erythema [Recovered/Resolved]
  - Anxiety [Recovered/Resolved]
  - Dyspnoea [Recovered/Resolved]
  - Bronchospasm [Recovered/Resolved]

NARRATIVE: CASE EVENT DATE: 20160705
